FAERS Safety Report 17575243 (Version 1)
Quarter: 2020Q1

REPORT INFORMATION
  Report Type: Spontaneous
  Country: US (occurrence: US)
  Receive Date: 20200324
  Receipt Date: 20200324
  Transmission Date: 20200409
  Serious: No
  Sender: FDA-Public Use
  Company Number: US-BAYER-2020-048831

PATIENT
  Age: 18 Year
  Sex: Female

DRUGS (2)
  1. ONDEDOM [ONDANSETRON] [Concomitant]
  2. KYLEENA [Suspect]
     Active Substance: LEVONORGESTREL
     Dosage: 17.5 ?G PER DAY, CONT
     Route: 015
     Dates: start: 20180907

REACTIONS (1)
  - Vomiting [None]
